FAERS Safety Report 25765228 (Version 1)
Quarter: 2025Q3

REPORT INFORMATION
  Report Type: Spontaneous
  Country: US (occurrence: US)
  Receive Date: 20250905
  Receipt Date: 20250905
  Transmission Date: 20251020
  Serious: Yes (Other)
  Sender: RANBAXY
  Company Number: US-SUN PHARMACEUTICAL INDUSTRIES LTD-2025R1-525654

PATIENT
  Age: 51 Year
  Sex: Male

DRUGS (5)
  1. PREDNISONE [Suspect]
     Active Substance: PREDNISONE
     Indication: Behcet^s syndrome
     Route: 065
  2. AZATHIOPRINE [Suspect]
     Active Substance: AZATHIOPRINE
     Indication: Behcet^s syndrome
     Route: 065
  3. APREMILAST [Concomitant]
     Active Substance: APREMILAST
     Indication: Behcet^s syndrome
     Route: 065
  4. COLCHICINE [Concomitant]
     Active Substance: COLCHICINE
     Indication: Behcet^s syndrome
     Route: 065
  5. SECUKINUMAB [Concomitant]
     Active Substance: SECUKINUMAB
     Indication: Behcet^s syndrome
     Route: 065

REACTIONS (1)
  - Chronic hyperplastic candidiasis [Recovered/Resolved]
